FAERS Safety Report 5993429-1 (Version None)
Quarter: 2008Q4

REPORT INFORMATION
  Report Type: 
  Country: None (occurrence: None)
  Receive Date: 20081212
  Receipt Date: 20081111
  Transmission Date: 20090506
  Serious: No
  Sender: FDA-Public Use
  Company Number: US-BAYER-200839027NA

PATIENT
  Age: 20 Year
  Sex: Female
  Weight: 41 kg

DRUGS (1)
  1. MIRENA [Suspect]
     Indication: CONTRACEPTION
     Route: 015
     Dates: start: 20080501

REACTIONS (6)
  - AMENORRHOEA [None]
  - BREAST TENDERNESS [None]
  - FATIGUE [None]
  - FEELING ABNORMAL [None]
  - IUCD COMPLICATION [None]
  - WEIGHT INCREASED [None]
